FAERS Safety Report 18436614 (Version 1)
Quarter: 2020Q4

REPORT INFORMATION
  Report Type: Spontaneous
  Country: HR (occurrence: HR)
  Receive Date: 20201028
  Receipt Date: 20201028
  Transmission Date: 20210114
  Serious: Yes (Other)
  Sender: FDA-Public Use
  Company Number: HR-BAUSCH-BL-2020-030730

PATIENT
  Sex: Male

DRUGS (1)
  1. YELLOX 0.9 MG/ML EYE DROPS, SOLUTION [Suspect]
     Active Substance: BROMFENAC SODIUM
     Indication: POSTOPERATIVE CARE
     Route: 065
     Dates: start: 20201015

REACTIONS (2)
  - Eye haemorrhage [Unknown]
  - Inappropriate schedule of product administration [Unknown]

NARRATIVE: CASE EVENT DATE: 20201015
